FAERS Safety Report 15680223 (Version 1)
Quarter: 2018Q4

REPORT INFORMATION
  Report Type: Spontaneous
  Country: US (occurrence: US)
  Receive Date: 20181203
  Receipt Date: 20181203
  Transmission Date: 20190205
  Serious: No
  Sender: FDA-Public Use
  Company Number: US-TEVA-2018-US-975785

PATIENT
  Sex: Female

DRUGS (1)
  1. CARBIDOPA AND LEVODOPA ACTAVIS [Suspect]
     Active Substance: CARBIDOPA\LEVODOPA
     Indication: PARKINSON^S DISEASE
     Dosage: 1 DOSAGE FORM= 25/100 MG
     Route: 065
     Dates: start: 201811

REACTIONS (5)
  - Affect lability [Unknown]
  - Fall [Unknown]
  - Balance disorder [Unknown]
  - Speech disorder [Unknown]
  - Product substitution issue [Unknown]

NARRATIVE: CASE EVENT DATE: 20181108
